FAERS Safety Report 9970024 (Version 1)
Quarter: 2014Q1

REPORT INFORMATION
  Report Type: Spontaneous
  Country: US (occurrence: None)
  Receive Date: 20140131
  Receipt Date: 20140131
  Transmission Date: 20141002
  Serious: Yes (Other)
  Sender: FDA-Public Use
  Company Number: 100314

PATIENT
  Age: 52 None
  Sex: Female
  Weight: 52 kg

DRUGS (1)
  1. KEPPRA [Suspect]
     Indication: EPILEPSY
     Dosage: DOSE: TOOK 2 TABLETS IN THE MORNING AND 3 IN THE EVENING
     Dates: start: 2011, end: 2011

REACTIONS (9)
  - Suicidal ideation [None]
  - Nausea [None]
  - Chills [None]
  - Malaise [None]
  - Depression [None]
  - Anger [None]
  - Sleep disorder [None]
  - Alcohol abuse [None]
  - Inappropriate schedule of drug administration [None]
